FAERS Safety Report 7981596-X (Version None)
Quarter: 2011Q4

REPORT INFORMATION
  Report Type: 
  Country: None (occurrence: None)
  Receive Date: 20111215
  Receipt Date: 20111209
  Transmission Date: 20120403
  Serious: Yes (Hospitalization)
  Sender: FDA-Public Use
  Company Number: DK-TEVA-309511ISR

PATIENT
  Sex: Male
  Weight: 108 kg

DRUGS (14)
  1. PREDNISONE [Suspect]
     Dates: start: 20111103
  2. RITUXIMAB [Suspect]
     Indication: DIFFUSE LARGE B-CELL LYMPHOMA
     Dosage: 750 MG, UNK
     Route: 042
     Dates: start: 20111014
  3. CYCLOPHOSPHAMIDE [Suspect]
     Route: 042
     Dates: start: 20111103
  4. NEUPOGEN [Suspect]
     Indication: DIFFUSE LARGE B-CELL LYMPHOMA
     Dosage: 6 MG, UNK
     Route: 058
     Dates: start: 20111017
  5. VINCRISTINE [Suspect]
     Dates: start: 20111103
  6. DOXORUBICIN HCL [Suspect]
     Dosage: LIPOSOME INJECTION
     Route: 042
     Dates: start: 20111103
  7. VINCRISTINE [Suspect]
     Indication: DIFFUSE LARGE B-CELL LYMPHOMA
     Dosage: 2 G, UNK
     Route: 042
     Dates: start: 20111014
  8. NEUPOGEN [Suspect]
     Indication: DIFFUSE LARGE B-CELL LYMPHOMA
     Route: 058
     Dates: start: 20111017
  9. DOXORUBICIN HCL [Suspect]
     Indication: DIFFUSE LARGE B-CELL LYMPHOMA
     Dosage: LIPOSOME INJECTION
     Route: 042
     Dates: start: 20111014
  10. CYCLOPHOSPHAMIDE [Suspect]
     Indication: DIFFUSE LARGE B-CELL LYMPHOMA
     Dosage: 1800 MG, UNK
     Route: 042
     Dates: start: 20111014
  11. DOXORUBICIN HCL [Suspect]
     Dosage: LIPOSOME INJECTION
     Route: 042
     Dates: start: 20111014
  12. PREDNISONE [Suspect]
     Indication: DIFFUSE LARGE B-CELL LYMPHOMA
     Dosage: 100 MG, UNK
     Route: 048
     Dates: start: 20111014
  13. RITUXIMAB [Suspect]
     Route: 042
     Dates: start: 20111103
  14. TINZAPARIN [Suspect]
     Indication: THROMBOSIS PROPHYLAXIS
     Dosage: TINZAPARIN INDUCTION/ MAINTENANCE CYCLE 4
     Route: 058

REACTIONS (1)
  - THROMBOSIS [None]
